FAERS Safety Report 21477921 (Version 5)
Quarter: 2022Q4

REPORT INFORMATION
  Report Type: Report from Study
  Country: US (occurrence: US)
  Receive Date: 20221019
  Receipt Date: 20221122
  Transmission Date: 20230112
  Serious: Yes (Hospitalization)
  Sender: FDA-Public Use
  Company Number: US-ALNYLAM PHARMACEUTICALS, INC.-ALN-2022-003630

PATIENT

DRUGS (1)
  1. GIVLAARI [Suspect]
     Active Substance: GIVOSIRAN SODIUM
     Indication: Porphyria
     Dosage: UNK
     Route: 065
     Dates: start: 20200908

REACTIONS (5)
  - Cervical vertebral fracture [Unknown]
  - Dyspnoea [Unknown]
  - Product dose omission issue [Unknown]
  - Pulmonary thrombosis [Unknown]
  - Thrombosis [Unknown]
